FAERS Safety Report 6069659-X (Version None)
Quarter: 2009Q1

REPORT INFORMATION
  Report Type: 
  Country: None (occurrence: None)
  Receive Date: 20090209
  Receipt Date: 20090202
  Transmission Date: 20090719
  Serious: Yes (Hospitalization)
  Sender: FDA-Public Use
  Company Number: US-JNJFOC-20090200978

PATIENT
  Sex: Female
  Weight: 93.44 kg

DRUGS (7)
  1. DURAGESIC-100 [Suspect]
     Indication: NEURALGIA
     Route: 062
  2. METFORMIN [Concomitant]
     Indication: DIABETES MELLITUS
     Route: 048
  3. PROZAC [Concomitant]
     Indication: DEPRESSION
     Route: 048
  4. CRESTOR [Concomitant]
     Indication: BLOOD CHOLESTEROL INCREASED
     Route: 048
  5. DIOVAN [Concomitant]
     Indication: HYPERTENSION
     Dosage: 320-25 MG
     Route: 048
  6. ZYRTEC [Concomitant]
     Indication: MULTIPLE ALLERGIES
     Route: 048
  7. MORPHINE SULFATE [Concomitant]
     Indication: BREAKTHROUGH PAIN
     Route: 048

REACTIONS (8)
  - ARTERIAL OCCLUSIVE DISEASE [None]
  - BENIGN NEOPLASM OF THYROID GLAND [None]
  - CHEST PAIN [None]
  - ELECTROCARDIOGRAM ABNORMAL [None]
  - ENDOCRINE DISORDER [None]
  - FATIGUE [None]
  - INCORRECT DRUG ADMINISTRATION DURATION [None]
  - PANIC ATTACK [None]
